FAERS Safety Report 25284576 (Version 2)
Quarter: 2025Q2

REPORT INFORMATION
  Report Type: Spontaneous
  Country: US (occurrence: US)
  Receive Date: 20250508
  Receipt Date: 20250521
  Transmission Date: 20250716
  Serious: No
  Sender: VIIV
  Company Number: US-VIIV HEALTHCARE-US2025AMR051644

PATIENT
  Age: 27 Year
  Sex: Male
  Weight: 96 kg

DRUGS (3)
  1. CABENUVA [Suspect]
     Active Substance: CABOTEGRAVIR\RILPIVIRINE
     Indication: Product used for unknown indication
     Dosage: UNK UNK, Q2M
     Route: 030
     Dates: start: 20250425, end: 20250425
  2. CABENUVA [Suspect]
     Active Substance: CABOTEGRAVIR\RILPIVIRINE
  3. CABENUVA [Suspect]
     Active Substance: CABOTEGRAVIR\RILPIVIRINE

REACTIONS (2)
  - Erythema [Unknown]
  - Feeling hot [Recovered/Resolved]

NARRATIVE: CASE EVENT DATE: 20250425
